FAERS Safety Report 21856194 (Version 1)
Quarter: 2023Q1

REPORT INFORMATION
  Report Type: Spontaneous
  Country: US (occurrence: US)
  Receive Date: 20230112
  Receipt Date: 20230112
  Transmission Date: 20230418
  Serious: Yes (Death, Hospitalization, Other)
  Sender: FDA-Public Use
  Company Number: US-ACERUSPHRM-2022-US-000684

PATIENT
  Age: 61 Year
  Sex: Male
  Weight: 95.2 kg

DRUGS (1)
  1. TESTOSTERONE [Suspect]
     Active Substance: TESTOSTERONE
     Indication: Sarcopenia
     Route: 030

REACTIONS (1)
  - Hepatocellular carcinoma [Fatal]
